FAERS Safety Report 5848828-5 (Version None)
Quarter: 2008Q3

REPORT INFORMATION
  Report Type: 
  Country: None (occurrence: None)
  Receive Date: 20080818
  Receipt Date: 20080806
  Transmission Date: 20090109
  Serious: Yes (Death, Life-Threatening, Hospitalization)
  Sender: FDA-Public Use
  Company Number: JP-PFIZER INC-2007071885

PATIENT
  Sex: Male

DRUGS (12)
  1. ZITHROMAX [Suspect]
     Indication: INFECTION PROPHYLAXIS
     Route: 048
     Dates: start: 20061106, end: 20070414
  2. COMBIVIR [Suspect]
     Route: 048
     Dates: start: 20061114, end: 20061211
  3. KALETRA [Suspect]
     Route: 048
     Dates: start: 20061114, end: 20070223
  4. VALGANCICLOVIR HCL [Concomitant]
     Route: 048
     Dates: start: 20061123, end: 20070414
  5. FOSCAVIR [Concomitant]
     Route: 042
     Dates: start: 20061123, end: 20070201
  6. COTRIM [Concomitant]
     Route: 048
     Dates: start: 20061106, end: 20061122
  7. DIFLUCAN [Concomitant]
     Route: 048
     Dates: start: 20061108, end: 20070127
  8. GASTER OD [Concomitant]
     Route: 048
     Dates: start: 20061116, end: 20070306
  9. FUNGIZONE [Concomitant]
     Route: 048
     Dates: start: 20061103, end: 20070220
  10. I.V. SOLUTIONS [Concomitant]
     Route: 042
     Dates: start: 20061025, end: 20070220
  11. EPZICOM [Concomitant]
     Route: 048
     Dates: start: 20061212, end: 20070319
  12. REYATAZ [Concomitant]
     Route: 048
     Dates: start: 20070224, end: 20070319

REACTIONS (15)
  - ACUTE RESPIRATORY FAILURE [None]
  - BONE MARROW FAILURE [None]
  - C-REACTIVE PROTEIN INCREASED [None]
  - CEREBRAL TOXOPLASMOSIS [None]
  - DEATH [None]
  - DISSEMINATED INTRAVASCULAR COAGULATION [None]
  - EATING DISORDER [None]
  - ENCEPHALITIS [None]
  - LOSS OF CONSCIOUSNESS [None]
  - PANCYTOPENIA [None]
  - PNEUMOTHORAX [None]
  - RESPIRATORY ARREST [None]
  - SEPSIS [None]
  - SHOCK [None]
  - STAPHYLOCOCCAL SEPSIS [None]
